FAERS Safety Report 7036028-5 (Version None)
Quarter: 2010Q4

REPORT INFORMATION
  Report Type: 
  Country: None (occurrence: None)
  Receive Date: 20101008
  Receipt Date: 20100803
  Transmission Date: 20110411
  Serious: Yes (Other)
  Sender: FDA-Public Use
  Company Number: CHPA2010US12441

PATIENT
  Age: 53 Year
  Sex: Female
  Weight: 72.562 kg

DRUGS (1)
  1. BENEFIBER W/ WHEAT DEXTRIN (NCH) [Suspect]
     Indication: SUPPLEMENTATION THERAPY
     Dosage: UNK, UNK
     Route: 048
     Dates: start: 20060101

REACTIONS (3)
  - DRUG ADMINISTRATION ERROR [None]
  - DRUG DEPENDENCE [None]
  - OVERDOSE [None]
